FAERS Safety Report 4718578-7 (Version None)
Quarter: 2005Q3

REPORT INFORMATION
  Report Type: 
  Country: None (occurrence: None)
  Receive Date: 20050720
  Receipt Date: 20050704
  Transmission Date: 20060218
  Serious: Yes (Hospitalization)
  Sender: FDA-Public Use
  Company Number: 2005AP03664

PATIENT
  Age: 30160 Day
  Sex: Female

DRUGS (1)
  1. IRESSA [Suspect]
     Indication: LUNG ADENOCARCINOMA
     Route: 048
     Dates: start: 20050608, end: 20050701

REACTIONS (1)
  - INTESTINAL OBSTRUCTION [None]
